FAERS Safety Report 4872931-X (Version None)
Quarter: 2006Q1

REPORT INFORMATION
  Report Type: 
  Country: None (occurrence: None)
  Receive Date: 20060105
  Receipt Date: 20050316
  Transmission Date: 20060701
  Serious: No
  Sender: FDA-Public Use
  Company Number: US-BRISTOL-MYERS SQUIBB COMPANY-12900908

PATIENT
  Age: 49 Year
  Sex: Female
  Weight: 103 kg

DRUGS (2)
  1. SERZONE [Suspect]
     Indication: DEPRESSION
     Route: 048
  2. SERZONE [Suspect]
     Indication: STRESS
     Route: 048

REACTIONS (4)
  - CHROMATURIA [None]
  - DIZZINESS [None]
  - HEADACHE [None]
  - INSOMNIA [None]
